FAERS Safety Report 11062284 (Version 2)
Quarter: 2015Q2

REPORT INFORMATION
  Report Type: Spontaneous
  Country: JP (occurrence: JP)
  Receive Date: 20150424
  Receipt Date: 20150604
  Transmission Date: 20150821
  Serious: Yes (Other)
  Sender: FDA-Public Use
  Company Number: JP-PFIZER INC-2015139665

PATIENT
  Age: 88 Year
  Sex: Male
  Weight: 51 kg

DRUGS (11)
  1. CORTRIL [Suspect]
     Active Substance: HYDROCORTISONE
     Dosage: 1.5 DF, 2X/DAY
     Route: 048
  2. LIPITOR [Concomitant]
     Active Substance: ATORVASTATIN CALCIUM
     Dosage: 10 MG, 1X/DAY
     Route: 048
  3. TIMOPTOL XE [Concomitant]
     Active Substance: TIMOLOL MALEATE
     Dosage: UNK, 2X/DAY
     Route: 047
  4. THYRADIN S [Concomitant]
     Active Substance: LEVOTHYROXINE SODIUM
     Dosage: 0.025 MG, 1X/DAY
     Route: 048
  5. METHYCOBAL [Concomitant]
     Active Substance: METHYLCOBALAMIN
     Dosage: 0.5 MG, 3X/DAY
     Route: 048
  6. RENIVACE [Concomitant]
     Active Substance: ENALAPRIL
     Dosage: 2.5 MG, 1X/DAY
     Route: 048
  7. AIPHAGAN [Concomitant]
     Active Substance: BRIMONIDINE TARTRATE
     Dosage: UNK, 2X/DAY
     Route: 047
  8. TRAVATAN Z [Concomitant]
     Active Substance: TRAVOPROST
     Dosage: UNK, 1X/DAY
     Route: 047
  9. ARTIST [Concomitant]
     Active Substance: CARVEDILOL
     Dosage: 2.5 MG, 1X/DAY
     Route: 048
  10. LANSOPRAZOLE OD [Concomitant]
     Active Substance: LANSOPRAZOLE
     Dosage: 15 MG, 1X/DAY
     Route: 048
  11. BONOTEO [Concomitant]
     Active Substance: MINODRONIC ACID
     Dosage: 50 MG, MONTHLY
     Route: 048

REACTIONS (2)
  - Cholecystitis acute [Unknown]
  - Sepsis [Unknown]

NARRATIVE: CASE EVENT DATE: 20150421
